FAERS Safety Report 14663317 (Version 1)
Quarter: 2018Q1

REPORT INFORMATION
  Report Type: Spontaneous
  Country: US (occurrence: US)
  Receive Date: 20180319
  Receipt Date: 20180319
  Transmission Date: 20180509
  Serious: Yes (Disabling)
  Sender: FDA-Public Use
  Company Number: None

PATIENT
  Age: 22 Year
  Sex: Female
  Weight: 72.57 kg

DRUGS (3)
  1. PARAGARD T 380A [Suspect]
     Active Substance: COPPER
     Indication: CONTRACEPTION
  2. IBUPROFEN. [Concomitant]
     Active Substance: IBUPROFEN
  3. CARCINIA CAMBOGIA VITAMIN CAPSULES [Concomitant]

REACTIONS (3)
  - Pain [None]
  - Metrorrhagia [None]
  - Muscle spasms [None]

NARRATIVE: CASE EVENT DATE: 20180318
